FAERS Safety Report 7808452-1 (Version None)
Quarter: 2011Q4

REPORT INFORMATION
  Report Type: 
  Country: None (occurrence: None)
  Receive Date: 20111011
  Receipt Date: 20111011
  Transmission Date: 20120403
  Serious: Yes (Death)
  Sender: FDA-Public Use
  Company Number: None

PATIENT
  Age: 59 Year
  Sex: Female
  Weight: 85.7 kg

DRUGS (1)
  1. ARSENIC TRIOXIDE [Suspect]
     Indication: SMALL CELL LUNG CANCER STAGE UNSPECIFIED
     Dosage: 28.7MG IV TWICE A WEEK
     Route: 042
     Dates: start: 20110918

REACTIONS (2)
  - HYPERBILIRUBINAEMIA [None]
  - DISEASE PROGRESSION [None]
